FAERS Safety Report 16932330 (Version 1)
Quarter: 2019Q4

REPORT INFORMATION
  Report Type: Spontaneous
  Country: US (occurrence: US)
  Receive Date: 20191017
  Receipt Date: 20191017
  Transmission Date: 20200122
  Serious: No
  Sender: FDA-Public Use
  Company Number: US-C B FLEET CO INC-201906-US-001516

PATIENT
  Sex: Female

DRUGS (1)
  1. MICONAZOLE NITRATE. [Suspect]
     Active Substance: MICONAZOLE NITRATE
     Indication: ABDOMINAL PAIN
     Dosage: DOSAGE UNKNOWN
     Route: 067

REACTIONS (6)
  - Product used for unknown indication [None]
  - Chills [Unknown]
  - Vaginal haemorrhage [Unknown]
  - Vaginal discharge [Unknown]
  - Condition aggravated [Unknown]
  - Nausea [Unknown]
